FAERS Safety Report 9311938 (Version 2)
Quarter: 2013Q2

REPORT INFORMATION
  Report Type: Spontaneous
  Country: JP (occurrence: JP)
  Receive Date: 20130528
  Receipt Date: 20130603
  Transmission Date: 20140414
  Serious: Yes (Hospitalization)
  Sender: FDA-Public Use
  Company Number: JP-SANOFI-AVENTIS-2013SA053085

PATIENT
  Age: 77 Year
  Sex: Female

DRUGS (9)
  1. MYSLEE [Suspect]
     Indication: PRODUCT USED FOR UNKNOWN INDICATION
     Route: 048
  2. BETANIS [Suspect]
     Indication: PRODUCT USED FOR UNKNOWN INDICATION
     Route: 048
  3. MEVALOTIN [Concomitant]
     Route: 065
  4. ZETIA [Concomitant]
     Route: 065
  5. TENORMIN [Concomitant]
     Route: 065
  6. IRSOGLADINE MALEATE [Concomitant]
     Route: 065
  7. SUNRYTHM [Concomitant]
     Route: 065
  8. PRAZAXA [Concomitant]
     Route: 065
  9. PARIET [Concomitant]
     Route: 065

REACTIONS (1)
  - Cerebral infarction [Unknown]
